FAERS Safety Report 10412949 (Version 3)
Quarter: 2014Q4

REPORT INFORMATION
  Report Type: Spontaneous
  Country: US (occurrence: None)
  Receive Date: 20140825
  Receipt Date: 20141009
  Transmission Date: 20150528
  Serious: Yes (Other)
  Sender: FDA-Public Use
  Company Number: 2014-US-010288

PATIENT
  Age: 65 Year
  Sex: Female
  Weight: 76.2 kg

DRUGS (6)
  1. INVOKANA [Suspect]
     Active Substance: CANAGLIFLOZIN
     Indication: TYPE 2 DIABETES MELLITUS
     Route: 048
  2. XYREM [Suspect]
     Active Substance: SODIUM OXYBATE
     Indication: CATAPLEXY
     Route: 048
     Dates: start: 201312
  3. ONGLYZA [Suspect]
     Active Substance: SAXAGLIPTIN HYDROCHLORIDE
     Indication: TYPE 2 DIABETES MELLITUS
     Route: 048
  4. METFORMIN [Suspect]
     Active Substance: METFORMIN HYDROCHLORIDE
     Indication: TYPE 2 DIABETES MELLITUS
     Route: 048
  5. XYREM [Suspect]
     Active Substance: SODIUM OXYBATE
     Indication: NARCOLEPSY
     Route: 048
     Dates: start: 201312
  6. GLIMEPIRIDE (GLIMEPIRIDE) [Suspect]
     Active Substance: GLIMEPIRIDE
     Indication: TYPE 2 DIABETES MELLITUS
     Route: 048

REACTIONS (16)
  - Blood magnesium abnormal [None]
  - Laceration [None]
  - Drug effect incomplete [None]
  - Blood potassium decreased [None]
  - Prostatic disorder [None]
  - Weight increased [None]
  - Anxiety [None]
  - Dizziness [None]
  - Fatigue [None]
  - Seizure [None]
  - Poor quality sleep [None]
  - Weight decreased [None]
  - Diabetes mellitus inadequate control [None]
  - Pollakiuria [None]
  - Hospitalisation [None]
  - Glycosylated haemoglobin increased [None]

NARRATIVE: CASE EVENT DATE: 2013
